FAERS Safety Report 5802574-2 (Version None)
Quarter: 2008Q2

REPORT INFORMATION
  Report Type: 
  Country: None (occurrence: None)
  Receive Date: 20080627
  Receipt Date: 20071015
  Transmission Date: 20081010
  Serious: Yes (Other)
  Sender: FDA-Public Use
  Company Number: 41757

PATIENT
  Age: 57 Year
  Sex: Female
  Weight: 81.6475 kg

DRUGS (1)
  1. MIDAZOLAM HCL [Suspect]
     Indication: COLONOSCOPY

REACTIONS (1)
  - DRUG INEFFECTIVE [None]
